FAERS Safety Report 16437797 (Version 1)
Quarter: 2019Q2

REPORT INFORMATION
  Report Type: Spontaneous
  Country: US (occurrence: US)
  Receive Date: 20190616
  Receipt Date: 20190616
  Transmission Date: 20190711
  Serious: No
  Sender: FDA-Public Use
  Company Number: US-ELI_LILLY_AND_COMPANY-US201906006296

PATIENT
  Sex: Male

DRUGS (4)
  1. HUMALOG [Suspect]
     Active Substance: INSULIN LISPRO
     Dosage: UNK,PRN,1 UNITS FOR EVERY 30 GRAMS OF FOOD AT LUNCH AND DINNER
     Route: 065
  2. HUMALOG [Suspect]
     Active Substance: INSULIN LISPRO
     Indication: PRODUCT USED FOR UNKNOWN INDICATION
     Dosage: UNK, PRN,1 UNITS FOR EVERY 20 GRAMS OF FOOD AT BREAKFAST
     Route: 065
  3. HUMALOG [Suspect]
     Active Substance: INSULIN LISPRO
     Indication: PRODUCT USED FOR UNKNOWN INDICATION
     Dosage: UNK, PRN, 1 UNITS FOR EVERY 20 GRAMS OF FOOD
     Route: 065
  4. HUMALOG [Suspect]
     Active Substance: INSULIN LISPRO
     Dosage: UNK, PRN, 1 UNITS FOR EVERY 30 GRAMS OF FOOD AT LUNCH AND DINNER
     Route: 065

REACTIONS (1)
  - Blood glucose increased [Recovering/Resolving]
